FAERS Safety Report 8811479 (Version 1)
Quarter: 2012Q4

REPORT INFORMATION
  Report Type: Spontaneous
  Country: US (occurrence: None)
  Receive Date: 20120925
  Receipt Date: 20120925
  Transmission Date: 20130627
  Serious: Yes (Hospitalization)
  Sender: FDA-Public Use
  Company Number: None

PATIENT
  Age: 68 Year
  Sex: Male
  Weight: 81.6 kg

DRUGS (8)
  1. TARCEVA [Suspect]
     Dosage: 75mg QD PO
     Route: 048
     Dates: start: 20090113, end: 20090707
  2. CELECOXIB [Suspect]
     Dosage: 400mg BID po
     Route: 048
     Dates: start: 20090120, end: 20090707
  3. PROTONIX [Concomitant]
  4. CLINDAMYCIN [Concomitant]
  5. NICOTINE [Concomitant]
  6. SIMVASTATIN [Concomitant]
  7. TRIAMCINOLONE [Concomitant]
  8. VITAMIN B [Concomitant]

REACTIONS (1)
  - Syncope [None]
